FAERS Safety Report 7527405-4 (Version None)
Quarter: 2011Q2

REPORT INFORMATION
  Report Type: 
  Country: None (occurrence: None)
  Receive Date: 20110512
  Receipt Date: 20110201
  Transmission Date: 20111010
  Serious: No
  Sender: FDA-Public Use
  Company Number: 1000018642

PATIENT
  Age: 61 Year
  Sex: Female

DRUGS (11)
  1. LEVOTHYROXINE (LEVOTHYROXINE SODIUM) (LEVOTHYROXINE SODIUM) [Concomitant]
  2. CELEBREX [Concomitant]
  3. FLEXERIL (CYCLOBENZAPRINE) (CYCLOBENZAPRINE) [Concomitant]
  4. SAVELLA [Suspect]
     Indication: PAIN
     Dosage: SEE IMAGE
     Route: 048
     Dates: start: 20101101, end: 20101101
  5. SAVELLA [Suspect]
     Indication: PAIN
     Dosage: SEE IMAGE
     Route: 048
     Dates: start: 20101101, end: 20101101
  6. SAVELLA [Suspect]
     Indication: PAIN
     Dosage: SEE IMAGE
     Route: 048
     Dates: start: 20101101
  7. SAVELLA [Suspect]
     Indication: PAIN
     Dosage: SEE IMAGE
     Route: 048
     Dates: start: 20101101, end: 20101101
  8. CRESTOR [Concomitant]
  9. MULTIVITAMIN (MULTIVITAMIN) (MULTIVITAMIN) [Concomitant]
  10. ASPIRIN [Concomitant]
  11. PROTONIX [Concomitant]

REACTIONS (1)
  - PERIPHERAL COLDNESS [None]
